FAERS Safety Report 11167011 (Version 1)
Quarter: 2015Q2

REPORT INFORMATION
  Report Type: Report from Study
  Country: AT (occurrence: None)
  Receive Date: 20150603
  Receipt Date: 20150603
  Transmission Date: 20150821
  Serious: Yes (Hospitalization)
  Sender: FDA-Public Use
  Company Number: 2014DEPAT00083

PATIENT
  Age: 9 Year
  Sex: Male
  Weight: 25.5 kg

DRUGS (11)
  1. THALIDOMIDE [Concomitant]
     Active Substance: THALIDOMIDE
  2. OLEOVIT D3 (COLECALCIFEROL) [Concomitant]
  3. MAGNESIUM (MAGNESIUM CARBONATE) [Concomitant]
  4. ETOPOSIDE (ETOPOSIDE PHOSPHATE) [Concomitant]
     Active Substance: ETOPOSIDE
  5. DEXAMETHASONE (DEXAMETHASONE SODIUM PHOSPHATE) [Concomitant]
  6. CELECOXIB. [Concomitant]
     Active Substance: CELECOXIB
  7. ZOFRAN (ONDANSETRON) [Concomitant]
  8. DEPOCYT(E) (CYTARABINE) LIPOSOME INJECTABLE SUSPENSION [Suspect]
     Active Substance: CYTARABINE
     Indication: MEDULLOBLASTOMA RECURRENT
     Dosage: 35 MG EVERY 4 WEEKS
     Route: 018
     Dates: start: 20140717, end: 20140910
  9. FENOFIBRATE. [Concomitant]
     Active Substance: FENOFIBRATE
  10. DUROTIV (ESOMEPRAZOLE ) [Concomitant]
  11. LIDAPRIM (SULFAMETROLE, TRIMETHOPRIM) [Concomitant]

REACTIONS (2)
  - Enterovirus infection [None]
  - Ataxia [None]

NARRATIVE: CASE EVENT DATE: 20141002
